FAERS Safety Report 5311635-6 (Version None)
Quarter: 2007Q1

REPORT INFORMATION
  Report Type: 
  Country: None (occurrence: None)
  Receive Date: 20070201
  Receipt Date: 20061114
  Transmission Date: 20070707
  Serious: No
  Sender: FDA-Public Use
  Company Number: 259074

PATIENT
  Age: 64 Year
  Sex: Female
  Weight: 127 kg

DRUGS (6)
  1. LEVEMIR [Suspect]
     Indication: DIABETES MELLITUS NON-INSULIN-DEPENDENT
     Dosage: 45 IU, QD
     Dates: start: 20060701
  2. NOVOLOG FLEXPLAN (INSULIN ASPART) SOLUTION FOR INJECTION, 100 U/ML [Concomitant]
  3. DILTIAZEM XR (DILTIAZEM HYDROCHLORIDE) [Concomitant]
  4. AMARYL (GLIMEPIRIDE) CAPSULE, 2MG [Concomitant]
  5. AVANDIA (ROSIGLITAZONE MALEATE) CAPSULE [Concomitant]
  6. QUINAPRIL HCL [Concomitant]

REACTIONS (4)
  - ARTHRALGIA [None]
  - BLOOD GLUCOSE FLUCTUATION [None]
  - HEADACHE [None]
  - INJECTION SITE IRRITATION [None]
